FAERS Safety Report 9394399 (Version 1)
Quarter: 2013Q3

REPORT INFORMATION
  Report Type: Spontaneous
  Country: US (occurrence: None)
  Receive Date: 20130709
  Receipt Date: 20130709
  Transmission Date: 20140515
  Serious: Yes (Other)
  Sender: FDA-Public Use
  Company Number: None

PATIENT
  Sex: 0

DRUGS (9)
  1. MELOXICAM [Suspect]
     Indication: MUSCLE STRAIN
     Dosage: 15MG 1 ONCE DAILY BY MOUTH
     Route: 048
     Dates: start: 20130513, end: 20130531
  2. GABAPENTIN [Concomitant]
  3. SYMBICORT [Concomitant]
  4. MULTIVITAMIN [Concomitant]
  5. CALCIUM 600 [Concomitant]
  6. B12 100 [Concomitant]
  7. COQ10 [Concomitant]
  8. VITAMIN D3 [Concomitant]
  9. PROBIOTICPITTS [Concomitant]

REACTIONS (3)
  - Blood pressure increased [None]
  - Local swelling [None]
  - Renal disorder [None]
